FAERS Safety Report 15958492 (Version 1)
Quarter: 2019Q1

REPORT INFORMATION
  Report Type: Spontaneous
  Country: US (occurrence: US)
  Receive Date: 20190213
  Receipt Date: 20190213
  Transmission Date: 20190417
  Serious: No
  Sender: FDA-Public Use
  Company Number: US-AMGEN-USASP2019022383

PATIENT
  Age: 69 Year
  Sex: Male

DRUGS (1)
  1. ENBREL [Suspect]
     Active Substance: ETANERCEPT
     Indication: ABDOMINAL PAIN UPPER
     Dosage: 50 MG, UNK
     Route: 065

REACTIONS (2)
  - Off label use [Unknown]
  - Sinusitis [Not Recovered/Not Resolved]
